FAERS Safety Report 9069355 (Version 3)
Quarter: 2013Q2

REPORT INFORMATION
  Report Type: Spontaneous
  Country: JP (occurrence: JP)
  Receive Date: 20130215
  Receipt Date: 20130404
  Transmission Date: 20140414
  Serious: Yes (Hospitalization, Disabling)
  Sender: FDA-Public Use
  Company Number: JP-ROCHE-1190718

PATIENT
  Age: 46 Year
  Sex: Female
  Weight: 52 kg

DRUGS (8)
  1. MIRCERA [Suspect]
     Indication: NEPHROGENIC ANAEMIA
     Route: 058
     Dates: start: 20120418, end: 20120815
  2. MIRCERA [Suspect]
     Indication: NEPHROGENIC ANAEMIA
     Route: 058
     Dates: start: 20120919, end: 20120919
  3. ALLELOCK [Suspect]
     Indication: RHINITIS ALLERGIC
     Route: 048
     Dates: start: 20120118, end: 201203
  4. ALFACALCIDOL [Suspect]
     Indication: PRODUCT USED FOR UNKNOWN INDICATION
     Dosage: DRUG REPORTED AS ALFASULY.DOSAGE IS UNCERTAIN
     Route: 048
  5. DIOVAN [Suspect]
     Indication: HYPERTENSION
     Route: 048
     Dates: end: 201205
  6. MUCOSTA [Suspect]
     Indication: GASTRIC ULCER
     Route: 048
     Dates: end: 201205
  7. NESP [Suspect]
     Indication: NEPHROGENIC ANAEMIA
     Route: 058
     Dates: end: 20111116
  8. AMLODIN [Concomitant]
     Indication: HYPERTENSION
     Route: 048

REACTIONS (2)
  - Hepatic function abnormal [Not Recovered/Not Resolved]
  - Hepatic cirrhosis [Unknown]
